FAERS Safety Report 9818264 (Version 1)
Quarter: 2014Q1

REPORT INFORMATION
  Report Type: Spontaneous
  Country: US (occurrence: US)
  Receive Date: 20140115
  Receipt Date: 20140115
  Transmission Date: 20141002
  Serious: No
  Sender: FDA-Public Use
  Company Number: US-BAYER-2014-006520

PATIENT
  Age: 64 Year
  Sex: Female
  Weight: 78.46 kg

DRUGS (1)
  1. ALEVE CAPLET [Suspect]
     Indication: BACK PAIN
     Dosage: ONCE DAILY/ ON OCCASION TWICE DAILY
     Route: 048
     Dates: start: 2006

REACTIONS (2)
  - Incorrect drug administration duration [None]
  - Therapeutic response unexpected [None]
